FAERS Safety Report 9180081 (Version 1)
Quarter: 2013Q1

REPORT INFORMATION
  Report Type: Spontaneous
  Country: IN (occurrence: IN)
  Receive Date: 20130321
  Receipt Date: 20130321
  Transmission Date: 20140127
  Serious: Yes (Death)
  Sender: FDA-Public Use
  Company Number: IN-009507513-1303IND009816

PATIENT
  Age: 70 Year
  Sex: 0

DRUGS (2)
  1. JANUMET [Suspect]
     Dosage: 1 TABLET
     Route: 048
  2. INSUGEN 30/70 [Concomitant]

REACTIONS (1)
  - Myocardial infarction [Fatal]
